FAERS Safety Report 15851015 (Version 1)
Quarter: 2019Q1

REPORT INFORMATION
  Report Type: Spontaneous
  Country: TW (occurrence: TW)
  Receive Date: 20190122
  Receipt Date: 20190122
  Transmission Date: 20190417
  Serious: Yes (Hospitalization)
  Sender: FDA-Public Use
  Company Number: TW-AMGEN-TWNSP2019009439

PATIENT
  Age: 61 Year
  Sex: Female

DRUGS (2)
  1. CELEBREX [Concomitant]
     Active Substance: CELECOXIB
  2. ENBREL [Suspect]
     Active Substance: ETANERCEPT
     Indication: RHEUMATOID ARTHRITIS
     Dosage: UNK
     Route: 058
     Dates: start: 20110711, end: 20190109

REACTIONS (3)
  - Pain in extremity [Unknown]
  - Gait inability [Unknown]
  - Pharyngitis [Unknown]

NARRATIVE: CASE EVENT DATE: 20190109
